FAERS Safety Report 10056019 (Version 2)
Quarter: 2014Q2

REPORT INFORMATION
  Report Type: Report from Study
  Country: AU (occurrence: AU)
  Receive Date: 20140403
  Receipt Date: 20140414
  Transmission Date: 20141212
  Serious: Yes (Other)
  Sender: FDA-Public Use
  Company Number: PHHY2014AU039541

PATIENT
  Age: 67 Year
  Sex: Female

DRUGS (23)
  1. ACLASTA [Suspect]
     Dosage: 5 MG, ANNUALLY
     Route: 042
     Dates: start: 20090529
  2. ACLASTA [Suspect]
     Dosage: 5 MG, UNK
     Route: 042
     Dates: start: 20100501
  3. ACLASTA [Suspect]
     Dosage: 5 MG, UNK
     Route: 042
     Dates: start: 20110528
  4. ACLASTA [Suspect]
     Dosage: 5 MG, UNK
     Route: 042
     Dates: start: 20120514
  5. ACLASTA [Suspect]
     Dosage: 5 MG, UNK
     Route: 042
     Dates: start: 20130613
  6. SLOW K [Concomitant]
     Dosage: 600 MG,DAILY
  7. ADVANTAN [Concomitant]
     Dosage: 1 DF, DAILY
  8. CRESTOR [Concomitant]
     Dosage: 10 MG,1 IN EVENING BEFORE MEALS
  9. DIABEX X.R. [Concomitant]
     Dosage: 1, DF, 1 IN THE MORNING AFTER MEAL
  10. KEFLEX [Concomitant]
     Dosage: 500 MG, TID AFTER MEAL
  11. MICARDIS PLUS [Concomitant]
     Dosage: 1 DF, UNK, BEFORE BED
  12. MICARDIS PLUS [Concomitant]
     Dosage: 80 MG : 12.5 MG, IN MORNING
  13. MOVICOL [Concomitant]
     Dosage: 1 DF, BID (TWICE A DAY)
  14. NEXIUM [Concomitant]
     Dosage: 1 DF, UNK,IN THE MORNING
  15. OMEGA 3 FISH OIL [Concomitant]
     Dosage: 1 DF, DAILY
  16. OROXINE [Concomitant]
     Dosage: 01 DF, DAILY
  17. OROXINE [Concomitant]
     Dosage: 0.1 MG, DAILY
  18. OVESTIN [Concomitant]
     Dosage: 1 DF, BID (TWICE A DAY)
     Route: 067
  19. PANAMAX [Concomitant]
     Dosage: 2 DF, TID
  20. PRAZOSIN [Concomitant]
     Dosage: 0.5 DF, BID
  21. WARFARIN [Concomitant]
     Dosage: 1 MG, IN THE EVENING
  22. WARFARIN [Concomitant]
     Dosage: 2 MG, 2 IN THE EVENING
  23. WARFARIN [Concomitant]
     Dosage: 5 MG, 1 IN THE EVENING

REACTIONS (6)
  - Type 2 diabetes mellitus [Unknown]
  - Diverticulum intestinal [Unknown]
  - Cataract [Unknown]
  - Mitral valve prolapse [Unknown]
  - Mitral valve incompetence [Unknown]
  - Osteoarthritis [Unknown]
